FAERS Safety Report 7780983-2 (Version None)
Quarter: 2011Q3

REPORT INFORMATION
  Report Type: 
  Country: None (occurrence: None)
  Receive Date: 20110927
  Receipt Date: 20110923
  Transmission Date: 20111222
  Serious: Yes (Other)
  Sender: FDA-Public Use
  Company Number: US-ABBOTT-11P-163-0699612-00

PATIENT
  Sex: Female

DRUGS (7)
  1. PRAVASTATIN [Concomitant]
     Indication: BLOOD CHOLESTEROL
  2. OXYCODONE [Concomitant]
     Indication: PAIN
  3. PREDNISONE [Concomitant]
     Indication: PRODUCT USED FOR UNKNOWN INDICATION
  4. CLONAZEPAM [Concomitant]
     Indication: ANXIETY
  5. DEXAMETHASONE [Concomitant]
     Indication: PRODUCT USED FOR UNKNOWN INDICATION
  6. HUMIRA [Suspect]
     Indication: PYODERMA GANGRENOSUM
     Route: 058
     Dates: start: 20100616
  7. CLONAZEPAM [Concomitant]
     Indication: DEPRESSION

REACTIONS (3)
  - ALOPECIA [None]
  - OSTEONECROSIS [None]
  - ARTHRALGIA [None]
